FAERS Safety Report 10017383 (Version 1)
Quarter: 2014Q1

REPORT INFORMATION
  Report Type: Spontaneous
  Country: US (occurrence: None)
  Receive Date: 20140313
  Receipt Date: 20140313
  Transmission Date: 20141002
  Serious: Yes (Other)
  Sender: FDA-Public Use
  Company Number: None

PATIENT
  Age: 51 Year
  Sex: Female
  Weight: 63.96 kg

DRUGS (1)
  1. CIPROFLOXACIN HCL 500 MG TADRL 2XDAY FOR 7 DAYS [Suspect]
     Indication: URINARY TRACT INFECTION
     Route: 048
     Dates: start: 20140120, end: 20140204

REACTIONS (4)
  - Arthralgia [None]
  - Somnolence [None]
  - Depression [None]
  - Joint swelling [None]
